FAERS Safety Report 4702619-7 (Version None)
Quarter: 2005Q2

REPORT INFORMATION
  Report Type: 
  Country: None (occurrence: None)
  Receive Date: 20050629
  Receipt Date: 20050510
  Transmission Date: 20051028
  Serious: Yes (Other)
  Sender: FDA-Public Use
  Company Number: NZ-GLAXOSMITHKLINE-B0380955B

PATIENT
  Age: 51 Year
  Sex: Female

DRUGS (6)
  1. PARACETAMOL [Suspect]
     Indication: PAIN
     Dosage: 1G FOUR TIMES PER DAY
     Route: 048
     Dates: start: 20050316, end: 20050501
  2. FRISIUM [Concomitant]
     Dosage: 10MG PER DAY
     Route: 065
  3. AMITRIPTYLINE HCL [Concomitant]
     Dosage: 30MG AT NIGHT
     Route: 065
  4. TEGRETOL [Concomitant]
     Dosage: 4.5U PER DAY
     Route: 065
  5. FLIXOTIDE [Concomitant]
     Route: 055
  6. LAMICTAL [Concomitant]
     Indication: EPILEPSY
     Dosage: 250MG TWICE PER DAY
     Route: 048

REACTIONS (2)
  - CONDITION AGGRAVATED [None]
  - CONVULSION [None]
